FAERS Safety Report 4730635-8 (Version None)
Quarter: 2005Q3

REPORT INFORMATION
  Report Type: 
  Country: None (occurrence: None)
  Receive Date: 20050801
  Receipt Date: 20050318
  Transmission Date: 20060218
  Serious: Yes (Other)
  Sender: FDA-Public Use
  Company Number: 2005UW04283

PATIENT
  Age: 24 Year
  Sex: Male
  Weight: 42.2 kg

DRUGS (4)
  1. ENTOCORT EC [Suspect]
     Indication: CROHN'S DISEASE
     Route: 048
     Dates: start: 20050308
  2. ENTOCORT EC [Suspect]
     Route: 048
     Dates: start: 20050601
  3. PENTASA [Concomitant]
  4. LACTAID [Concomitant]

REACTIONS (8)
  - ABDOMINAL PAIN UPPER [None]
  - ABSCESS INTESTINAL [None]
  - CONDITION AGGRAVATED [None]
  - CROHN'S DISEASE [None]
  - DECREASED APPETITE [None]
  - FATIGUE [None]
  - GASTRO-INTESTINAL FISTULA [None]
  - WOUND DRAINAGE [None]
